FAERS Safety Report 4717432-4 (Version None)
Quarter: 2005Q3

REPORT INFORMATION
  Report Type: 
  Country: None (occurrence: None)
  Receive Date: 20050719
  Receipt Date: 20050711
  Transmission Date: 20060218
  Serious: Yes (Hospitalization)
  Sender: FDA-Public Use
  Company Number: DE-MERCK-0507DEU00087

PATIENT
  Age: 74 Year
  Sex: Female
  Weight: 84 kg

DRUGS (11)
  1. VIOXX [Suspect]
     Indication: OSTEOARTHRITIS
     Route: 048
     Dates: start: 19990101
  2. VIOXX [Suspect]
     Indication: SPINAL DISORDER
     Route: 048
     Dates: start: 19990101
  3. ASPIRIN [Concomitant]
     Route: 048
  4. SOTALOL HYDROCHLORIDE [Concomitant]
     Route: 048
  5. FLUVASTATIN SODIUM [Concomitant]
     Route: 048
  6. METHIMAZOLE [Concomitant]
     Route: 065
  7. MAGNESIUM (UNSPECIFIED) [Concomitant]
     Route: 048
  8. COUMARIN AND TROXERUTIN [Concomitant]
     Route: 048
  9. VITAMIN E ACETATE D-FORM [Concomitant]
     Route: 048
  10. TIMOLOL MALEATE [Concomitant]
     Route: 047
  11. AMINOPHYLLINE AND QUININE SULFATE [Concomitant]
     Route: 048

REACTIONS (13)
  - ATRIAL FIBRILLATION [None]
  - CARDIAC FAILURE [None]
  - GENERAL PHYSICAL CONDITION ABNORMAL [None]
  - HAEMOPTYSIS [None]
  - HEART RATE IRREGULAR [None]
  - HYPERTENSION [None]
  - LOBAR PNEUMONIA [None]
  - PULMONARY EMBOLISM [None]
  - PULMONARY HYPERTENSION [None]
  - RESPIRATORY FAILURE [None]
  - SICK SINUS SYNDROME [None]
  - SINUS ARRHYTHMIA [None]
  - VITAL CAPACITY DECREASED [None]
